FAERS Safety Report 7270075-3 (Version None)
Quarter: 2010Q4

REPORT INFORMATION
  Report Type: 
  Country: None (occurrence: None)
  Receive Date: 20101130
  Receipt Date: 20090803
  Transmission Date: 20110411
  Serious: Yes (Hospitalization)
  Sender: FDA-Public Use
  Company Number: 2009SP017666

PATIENT
  Age: 42 Year
  Sex: Female
  Weight: 58.9676 kg

DRUGS (2)
  1. NUVARING [Suspect]
     Indication: CONTRACEPTION
     Dosage: 1 DF; QM; VAG
     Route: 067
     Dates: start: 20060501, end: 20070201
  2. LODINE [Concomitant]

REACTIONS (4)
  - HEADACHE [None]
  - PAIN [None]
  - PITYRIASIS ROSEA [None]
  - PULMONARY EMBOLISM [None]
